FAERS Safety Report 6934850-4 (Version None)
Quarter: 2010Q3

REPORT INFORMATION
  Report Type: 
  Country: None (occurrence: None)
  Receive Date: 20100820
  Receipt Date: 20100806
  Transmission Date: 20110219
  Serious: Yes (Hospitalization, Other)
  Sender: FDA-Public Use
  Company Number: PHHY2010FR52265

PATIENT
  Sex: Female

DRUGS (5)
  1. EXELON [Suspect]
     Indication: DEMENTIA WITH LEWY BODIES
     Dosage: 9.5 MG, QD
     Route: 062
     Dates: start: 20090101
  2. EXELON [Suspect]
     Dosage: 9.5 MG, QD
     Route: 062
     Dates: start: 20100616, end: 20100618
  3. AUGMENTIN '125' [Concomitant]
     Dosage: UNK
     Dates: start: 20100517, end: 20100618
  4. FLAGYL [Concomitant]
     Dosage: UNK
     Dates: start: 20100517, end: 20100618
  5. OFLOCET [Concomitant]
     Dosage: UNK
     Dates: start: 20100517, end: 20100618

REACTIONS (7)
  - ANAPHYLACTIC SHOCK [None]
  - APPLICATION SITE RASH [None]
  - CONVULSION [None]
  - DISTURBANCE IN ATTENTION [None]
  - HYPOTONIA [None]
  - OVERDOSE [None]
  - RASH GENERALISED [None]
